FAERS Safety Report 5421869-8 (Version None)
Quarter: 2007Q3

REPORT INFORMATION
  Report Type: 
  Country: None (occurrence: None)
  Receive Date: 20070817
  Receipt Date: 20070726
  Transmission Date: 20080115
  Serious: Yes (Other)
  Sender: FDA-Public Use
  Company Number: 2007RR-09006

PATIENT
  Age: 33 Year
  Sex: Female

DRUGS (3)
  1. DOXYCYCLINE [Suspect]
     Dosage: 100 MG, BID, ORAL
     Route: 048
  2. PREDNISOLONE RPG (PREDNISOLONE) [Concomitant]
  3. METHYLPREDNISOLONE 16MG TAB [Concomitant]

REACTIONS (4)
  - DEAFNESS NEUROSENSORY [None]
  - DEAFNESS UNILATERAL [None]
  - DRUG INEFFECTIVE [None]
  - PLEOCYTOSIS [None]
